FAERS Safety Report 16937185 (Version 5)
Quarter: 2019Q4

REPORT INFORMATION
  Report Type: Spontaneous
  Country: US (occurrence: US)
  Receive Date: 20191019
  Receipt Date: 20191109
  Transmission Date: 20200122
  Serious: No
  Sender: FDA-Public Use
  Company Number: US-UNITED THERAPEUTICS-UNT-2019-017310

PATIENT
  Age: 65 Year
  Sex: Female
  Weight: 94.33 kg

DRUGS (2)
  1. TYVASO [Suspect]
     Active Substance: TREPROSTINIL
     Indication: PULMONARY ARTERIAL HYPERTENSION
     Dosage: 18-54 ?G, QID
     Dates: start: 20190712, end: 20191016
  2. ADEMPAS [Concomitant]
     Active Substance: RIOCIGUAT
     Indication: PRODUCT USED FOR UNKNOWN INDICATION
     Dosage: UNK
     Route: 065

REACTIONS (13)
  - Blood sodium decreased [Unknown]
  - Insomnia [Unknown]
  - Abdominal distension [Unknown]
  - Lung disorder [Unknown]
  - Feeling abnormal [Unknown]
  - Asthenia [Unknown]
  - Pain [Unknown]
  - Crying [Unknown]
  - Swelling [Unknown]
  - Fatigue [Unknown]
  - Pneumonia [Unknown]
  - Decreased appetite [Unknown]
  - Dyspnoea [Unknown]

NARRATIVE: CASE EVENT DATE: 2019
